FAERS Safety Report 13104573 (Version 1)
Quarter: 2017Q1

REPORT INFORMATION
  Report Type: Spontaneous
  Country: US (occurrence: US)
  Receive Date: 20170110
  Receipt Date: 20170110
  Transmission Date: 20170428
  Serious: Yes (Other)
  Sender: FDA-Public Use
  Company Number: None

PATIENT
  Age: 64 Year
  Sex: Male
  Weight: 84.6 kg

DRUGS (1)
  1. FLUNISOLIDE. [Suspect]
     Active Substance: FLUNISOLIDE
     Indication: RHINITIS ALLERGIC
     Route: 045
     Dates: start: 20170109, end: 20170109

REACTIONS (3)
  - Nasal inflammation [None]
  - Cough [None]
  - Dyspnoea [None]

NARRATIVE: CASE EVENT DATE: 20170109
